FAERS Safety Report 15289455 (Version 1)
Quarter: 2018Q3

REPORT INFORMATION
  Report Type: Spontaneous
  Country: US (occurrence: US)
  Receive Date: 20180803
  Receipt Date: 20180803
  Transmission Date: 20181010
  Serious: Yes (Disabling)
  Sender: FDA-Public Use
  Company Number: None

PATIENT
  Age: 67 Year
  Sex: Female
  Weight: 74.7 kg

DRUGS (9)
  1. NOVOLOG [Concomitant]
     Active Substance: INSULIN ASPART
  2. BYSTOLIC [Concomitant]
     Active Substance: NEBIVOLOL HYDROCHLORIDE
  3. BETA CAROTENE [Concomitant]
  4. PROBIOTIC [Concomitant]
     Active Substance: PROBIOTICS NOS
  5. VITAMIN D3 [Concomitant]
     Active Substance: CHOLECALCIFEROL
  6. ARMOUR THYROID [Concomitant]
     Active Substance: THYROID, PORCINE
  7. RANEXA [Suspect]
     Active Substance: RANOLAZINE
     Indication: ANGINA PECTORIS
     Dosage: ?          QUANTITY:1 TABLET(S);?
     Route: 048
     Dates: start: 20180727, end: 20180802
  8. ASCORBIC ACID. [Concomitant]
     Active Substance: ASCORBIC ACID
  9. ASA [Concomitant]
     Active Substance: ASPIRIN

REACTIONS (13)
  - Eructation [None]
  - Pain in extremity [None]
  - Malaise [None]
  - Dizziness [None]
  - Gait disturbance [None]
  - Arthralgia [None]
  - Musculoskeletal pain [None]
  - Muscular weakness [None]
  - Fatigue [None]
  - Night sweats [None]
  - Muscle spasms [None]
  - Constipation [None]
  - Hallucination, visual [None]

NARRATIVE: CASE EVENT DATE: 20180802
